FAERS Safety Report 5738059-1 (Version None)
Quarter: 2008Q2

REPORT INFORMATION
  Report Type: 
  Country: None (occurrence: None)
  Receive Date: 20080514
  Receipt Date: 20080430
  Transmission Date: 20081010
  Serious: Yes (Congenital Anomaly, Other)
  Sender: FDA-Public Use
  Company Number: US-JNJFOC-20080502237

PATIENT
  Sex: Male

DRUGS (1)
  1. ASPIRIN [Suspect]
     Indication: DRUG EXPOSURE DURING PREGNANCY

REACTIONS (1)
  - SPINA BIFIDA [None]
